FAERS Safety Report 4864805-5 (Version None)
Quarter: 2005Q4

REPORT INFORMATION
  Report Type: 
  Country: None (occurrence: None)
  Receive Date: 20051222
  Receipt Date: 20051214
  Transmission Date: 20060501
  Serious: Yes (Life-Threatening, Hospitalization)
  Sender: FDA-Public Use
  Company Number: BE-MERCK-0512BEL00011

PATIENT
  Age: 50 Year
  Sex: Female

DRUGS (1)
  1. CANCIDAS [Suspect]
     Indication: PROPHYLAXIS
     Route: 042
     Dates: start: 20050101, end: 20050101

REACTIONS (2)
  - BRONCHOPULMONARY ASPERGILLOSIS [None]
  - DRUG INEFFECTIVE [None]
